FAERS Safety Report 10023763 (Version 1)
Quarter: 2014Q1

REPORT INFORMATION
  Report Type: Spontaneous
  Country: FR (occurrence: FR)
  Receive Date: 20140320
  Receipt Date: 20140320
  Transmission Date: 20141002
  Serious: Yes (Other)
  Sender: FDA-Public Use
  Company Number: FR-MYLANLABS-2014S1005309

PATIENT
  Age: 67 Year
  Sex: Female

DRUGS (1)
  1. FUROSEMIDE [Suspect]
     Dosage: HIGH DOSES
     Route: 042

REACTIONS (2)
  - Hypovolaemia [Recovered/Resolved]
  - Renal failure [Recovered/Resolved]
